FAERS Safety Report 13537724 (Version 9)
Quarter: 2017Q3

REPORT INFORMATION
  Report Type: Report from Study
  Country: US (occurrence: US)
  Receive Date: 20170511
  Receipt Date: 20170906
  Transmission Date: 20171127
  Serious: Yes (Death, Hospitalization)
  Sender: FDA-Public Use
  Company Number: US-ACTELION-A-US2017-147968

PATIENT
  Age: 56 Year
  Sex: Female
  Weight: 104.31 kg

DRUGS (7)
  1. CEPHALEXIN. [Concomitant]
     Active Substance: CEPHALEXIN
     Dosage: 500 MG, UNK
     Dates: start: 20170424
  2. VELETRI [Suspect]
     Active Substance: EPOPROSTENOL
     Indication: PULMONARY ARTERIAL HYPERTENSION
     Dosage: 38 NG/KG, PER MIN
     Route: 042
  3. VELETRI [Suspect]
     Active Substance: EPOPROSTENOL
     Dosage: 23 NG/KG, PER MIN
     Route: 042
  4. ADEMPAS [Suspect]
     Active Substance: RIOCIGUAT
     Indication: PRODUCT USED FOR UNKNOWN INDICATION
     Dosage: 1 MG, UNK
     Route: 065
     Dates: start: 20170405, end: 20170408
  5. XARELTO [Concomitant]
     Active Substance: RIVAROXABAN
  6. VELETRI [Suspect]
     Active Substance: EPOPROSTENOL
     Dosage: 20 NG/KG, PER MIN
     Route: 042
     Dates: start: 20161012
  7. OPSUMIT [Suspect]
     Active Substance: MACITENTAN
     Indication: PULMONARY ARTERIAL HYPERTENSION
     Dosage: 10 MG, QD
     Route: 048
     Dates: start: 20170227

REACTIONS (31)
  - Wound [Unknown]
  - Fluid retention [Unknown]
  - Dyspnoea [Unknown]
  - Ascites [Unknown]
  - Oedema peripheral [Unknown]
  - Abdominal discomfort [Unknown]
  - Pulmonary arterial hypertension [Fatal]
  - Confusional state [Unknown]
  - Nausea [Unknown]
  - Fall [Unknown]
  - Irritable bowel syndrome [Unknown]
  - Headache [Unknown]
  - Hypotension [Unknown]
  - Septic shock [Unknown]
  - Decubitus ulcer [Unknown]
  - Blood pressure decreased [Unknown]
  - Fatigue [Unknown]
  - Sepsis [Unknown]
  - Oedema [Unknown]
  - Muscle strain [Unknown]
  - Disease complication [Fatal]
  - Thrombosis [Unknown]
  - Condition aggravated [Unknown]
  - Rectal haemorrhage [Recovered/Resolved]
  - Malaise [Unknown]
  - Cellulitis [Unknown]
  - Fungal infection [Unknown]
  - Cardiac failure congestive [Unknown]
  - Retching [Recovering/Resolving]
  - Weight decreased [Unknown]
  - Muscular weakness [Unknown]

NARRATIVE: CASE EVENT DATE: 20170503
